FAERS Safety Report 22534039 (Version 1)
Quarter: 2023Q2

REPORT INFORMATION
  Report Type: Spontaneous
  Country: US (occurrence: US)
  Receive Date: 20230608
  Receipt Date: 20230608
  Transmission Date: 20230721
  Serious: No
  Sender: FDA-Public Use
  Company Number: US-GE HEALTHCARE-2023CSU002560

PATIENT
  Age: 43 Year
  Sex: Male
  Weight: 105 kg

DRUGS (11)
  1. ADREVIEW [Suspect]
     Active Substance: IOBENGUANE I-123
     Indication: Diagnostic procedure
     Dosage: 399.6 MBQ (10.8 MCI), ONCE
     Route: 042
     Dates: start: 20230328, end: 20230328
  2. ADREVIEW [Suspect]
     Active Substance: IOBENGUANE I-123
     Indication: Phaeochromocytoma
  3. ADREVIEW [Suspect]
     Active Substance: IOBENGUANE I-123
     Indication: Paraganglion neoplasm
  4. CLONIDINE HYDROCHLORIDE [Concomitant]
     Active Substance: CLONIDINE HYDROCHLORIDE
     Dosage: UNK
  5. LORAZEPAM [Concomitant]
     Active Substance: LORAZEPAM
     Dosage: UNK
  6. SENNA LAXATIVE [Concomitant]
     Active Substance: SENNOSIDES
     Dosage: UNK
  7. NIFEDIPINE [Concomitant]
     Active Substance: NIFEDIPINE
     Dosage: UNK
  8. METHADONE [Concomitant]
     Active Substance: METHADONE HYDROCHLORIDE
     Dosage: UNK
  9. LISINOPRIL [Concomitant]
     Active Substance: LISINOPRIL
     Dosage: UNK
  10. PANTOPRAZOLE [Concomitant]
     Active Substance: PANTOPRAZOLE
     Dosage: UNK
  11. CHLORTHALIDONE [Concomitant]
     Active Substance: CHLORTHALIDONE
     Dosage: UNK

REACTIONS (2)
  - Drug ineffective [Recovered/Resolved]
  - No adverse event [Recovered/Resolved]

NARRATIVE: CASE EVENT DATE: 20230329
